FAERS Safety Report 8423054-4 (Version None)
Quarter: 2012Q2

REPORT INFORMATION
  Report Type: 
  Country: None (occurrence: None)
  Receive Date: 20120608
  Receipt Date: 20120531
  Transmission Date: 20120825
  Serious: Yes (Other)
  Sender: FDA-Public Use
  Company Number: AR-JNJFOC-20120111925

PATIENT
  Sex: Male
  Weight: 82.5 kg

DRUGS (15)
  1. GOLIMUMAB [Suspect]
     Route: 058
     Dates: start: 20111005
  2. ERGOCALCIFEROL [Concomitant]
     Route: 048
     Dates: start: 20091230
  3. LEVOTHYROXINE SODIUM [Concomitant]
     Indication: HYPOTHYROIDISM
     Dates: start: 19980101
  4. FLUCONAZOLE [Concomitant]
     Route: 048
     Dates: start: 20091101
  5. GOLIMUMAB [Suspect]
     Indication: RHEUMATOID ARTHRITIS
     Route: 058
     Dates: start: 20061206
  6. DICLOFENAC SODIUM [Concomitant]
     Indication: RHEUMATOID ARTHRITIS
     Route: 048
     Dates: start: 20040401
  7. METHOTREXATE [Concomitant]
     Route: 048
     Dates: start: 20080521
  8. IBANDRONATE SODIUM [Concomitant]
     Route: 048
     Dates: start: 20110713
  9. FOLIC ACID [Concomitant]
     Indication: RHEUMATOID ARTHRITIS
     Route: 048
     Dates: start: 20040203
  10. PREDNISONE [Concomitant]
     Indication: RHEUMATOID ARTHRITIS
     Route: 048
     Dates: start: 20060325
  11. METHOTREXATE [Suspect]
     Indication: RHEUMATOID ARTHRITIS
     Route: 048
     Dates: start: 20071211, end: 20080520
  12. METHOTREXATE [Suspect]
     Route: 048
     Dates: start: 20080521
  13. RANITIDINE [Concomitant]
     Route: 048
     Dates: start: 20040101
  14. TAMSULOSIN HCL [Concomitant]
     Route: 048
     Dates: start: 20080205
  15. VITAMIN D [Concomitant]
     Route: 048
     Dates: start: 20090128

REACTIONS (1)
  - PROSTATE CANCER [None]
